FAERS Safety Report 23160421 (Version 1)
Quarter: 2023Q4

REPORT INFORMATION
  Report Type: Spontaneous
  Country: JP (occurrence: JP)
  Receive Date: 20231108
  Receipt Date: 20231108
  Transmission Date: 20240109
  Serious: Yes (Hospitalization)
  Sender: FDA-Public Use
  Company Number: JP-MOCHP-A20234466

PATIENT
  Sex: Female

DRUGS (1)
  1. LEXAPRO [Suspect]
     Active Substance: ESCITALOPRAM OXALATE
     Indication: Insomnia
     Route: 048
     Dates: start: 2015

REACTIONS (3)
  - Suicide attempt [Unknown]
  - Blood pressure increased [Unknown]
  - Product use in unapproved indication [Unknown]
